FAERS Safety Report 16203632 (Version 3)
Quarter: 2019Q2

REPORT INFORMATION
  Report Type: Report from Study
  Country: JP (occurrence: JP)
  Receive Date: 20190416
  Receipt Date: 20190627
  Transmission Date: 20190711
  Serious: Yes (Hospitalization)
  Sender: FDA-Public Use
  Company Number: JP-EISAI MEDICAL RESEARCH-EC-2019-054982

PATIENT
  Age: 77 Year
  Sex: Male
  Weight: 52 kg

DRUGS (6)
  1. CELECOX [Concomitant]
     Active Substance: CELECOXIB
  2. FAMOTIDINE. [Concomitant]
     Active Substance: FAMOTIDINE
  3. BIOFERMIN [Concomitant]
     Active Substance: DIETARY SUPPLEMENT\PROBIOTICS
  4. ERIBULIN [Suspect]
     Active Substance: ERIBULIN
     Indication: GASTRIC CANCER
     Route: 042
     Dates: start: 20190329
  5. CEFZON [Concomitant]
     Active Substance: CEFDINIR
  6. PLAVIX [Concomitant]
     Active Substance: CLOPIDOGREL BISULFATE

REACTIONS (2)
  - Faecaloma [Recovered/Resolved]
  - Neutropenia [Recovered/Resolved]

NARRATIVE: CASE EVENT DATE: 20190405
